FAERS Safety Report 8209102-5 (Version None)
Quarter: 2012Q1

REPORT INFORMATION
  Report Type: 
  Country: None (occurrence: None)
  Receive Date: 20120314
  Receipt Date: 20120217
  Transmission Date: 20120608
  Serious: Yes (Other)
  Sender: FDA-Public Use
  Company Number: JP-BRISTOL-MYERS SQUIBB COMPANY-16431140

PATIENT

DRUGS (1)
  1. ABILIFY [Suspect]
     Route: 048

REACTIONS (1)
  - CONDITION AGGRAVATED [None]
